FAERS Safety Report 7727580-2 (Version None)
Quarter: 2011Q3

REPORT INFORMATION
  Report Type: 
  Country: None (occurrence: None)
  Receive Date: 20110902
  Receipt Date: 20110830
  Transmission Date: 20111222
  Serious: Yes (Hospitalization, Other)
  Sender: FDA-Public Use
  Company Number: CH-PFIZER INC-2011144968

PATIENT
  Age: 50 Year
  Sex: Female
  Weight: 39 kg

DRUGS (7)
  1. PANTOPRAZOLE [Suspect]
     Dosage: 40 MG, 2X/DAY
     Route: 048
     Dates: start: 20110407, end: 20110407
  2. NOVALGIN [Suspect]
     Dosage: 20 GTT, 4X/DAY
     Route: 048
     Dates: start: 20110301
  3. ACETAMINOPHEN [Concomitant]
     Dosage: 1 G, AS NEEDED
     Route: 048
  4. ZOLEDRONOC ACID [Suspect]
     Indication: OSTEOPOROSIS
     Dosage: UNK
     Route: 042
     Dates: start: 20080101, end: 20080101
  5. CLARITHROMYCIN [Suspect]
     Dosage: 250 MG, UNK
     Route: 048
     Dates: end: 20110301
  6. MEFENAMIC ACID [Suspect]
     Dosage: 500 MG, 3X/DAY
     Route: 048
     Dates: start: 20110201, end: 20110401
  7. AUGMENTIN '125' [Suspect]
     Dosage: UNK
     Route: 048
     Dates: start: 20110201, end: 20110301

REACTIONS (11)
  - MYALGIA [None]
  - TUBULOINTERSTITIAL NEPHRITIS [None]
  - OSTEONECROSIS OF JAW [None]
  - VASCULITIS [None]
  - RENAL FAILURE ACUTE [None]
  - ARTHRALGIA [None]
  - VOMITING [None]
  - CHILLS [None]
  - OSTEOMYELITIS [None]
  - RASH [None]
  - PYREXIA [None]
